FAERS Safety Report 8113871-2 (Version None)
Quarter: 2012Q1

REPORT INFORMATION
  Report Type: 
  Country: None (occurrence: None)
  Receive Date: 20120127
  Receipt Date: 20110112
  Transmission Date: 20120608
  Serious: Yes (Hospitalization)
  Sender: FDA-Public Use
  Company Number: US-ABBOTT-11P-163-0697664-00

PATIENT
  Sex: Male
  Weight: 102.15 kg

DRUGS (2)
  1. HUMIRA [Suspect]
     Indication: RHEUMATOID ARTHRITIS
     Dates: start: 20090901, end: 20101215
  2. NICODERM [Concomitant]
     Indication: PRODUCT USED FOR UNKNOWN INDICATION
     Dosage: PATCH
     Dates: start: 20101201

REACTIONS (5)
  - ENTEROCOCCAL SEPSIS [None]
  - SPLENIC ABSCESS [None]
  - CARDIAC VALVE ABSCESS [None]
  - ENDOCARDITIS [None]
  - ABDOMINAL PAIN UPPER [None]
